FAERS Safety Report 23779487 (Version 1)
Quarter: 2024Q2

REPORT INFORMATION
  Report Type: Report from Study
  Country: GB (occurrence: GB)
  Receive Date: 20240424
  Receipt Date: 20240424
  Transmission Date: 20240716
  Serious: Yes (Death, Hospitalization, Other)
  Sender: FDA-Public Use
  Company Number: GB-AKCEA THERAPEUTICS, INC.-2024IS003618

PATIENT

DRUGS (1)
  1. TEGSEDI [Suspect]
     Active Substance: INOTERSEN SODIUM
     Indication: Hereditary neuropathic amyloidosis
     Dosage: 284 MILLIGRAM, QW (ONCE A WEEK)
     Route: 058
     Dates: start: 202004, end: 20221121

REACTIONS (24)
  - Death [Fatal]
  - Cardiac failure [Unknown]
  - Acute kidney injury [Unknown]
  - Blood glucose increased [Unknown]
  - Dehydration [Unknown]
  - Anaemia [Unknown]
  - Nausea [Unknown]
  - Loss of consciousness [Unknown]
  - Blood pressure fluctuation [Unknown]
  - Heart rate increased [Unknown]
  - Atrioventricular block [Unknown]
  - Generalised oedema [Not Recovered/Not Resolved]
  - Ascites [Not Recovered/Not Resolved]
  - Refusal of examination [Unknown]
  - Feeding disorder [Unknown]
  - Refusal of treatment by patient [Unknown]
  - Platelet count decreased [Unknown]
  - Malaise [Unknown]
  - Asthenia [Unknown]
  - Mobility decreased [Unknown]
  - Oedema peripheral [Unknown]
  - Urinary retention [Unknown]
  - Fatigue [Unknown]
  - Decreased appetite [Unknown]

NARRATIVE: CASE EVENT DATE: 20220401
